FAERS Safety Report 23959008 (Version 1)
Quarter: 2024Q2

REPORT INFORMATION
  Report Type: Spontaneous
  Country: US (occurrence: US)
  Receive Date: 20240611
  Receipt Date: 20240611
  Transmission Date: 20240715
  Serious: No
  Sender: FDA-Public Use
  Company Number: US-JNJFOC-20240622050

PATIENT
  Age: 77 Year
  Sex: Male
  Weight: 74.4 kg

DRUGS (15)
  1. OPSUMIT [Suspect]
     Active Substance: MACITENTAN
     Indication: Product used for unknown indication
     Route: 048
  2. TYVASO [Suspect]
     Active Substance: TREPROSTINIL
     Indication: Pulmonary arterial hypertension
     Dosage: TREPROSTINIL SODIUM, CONCENTRATION OF 0.6 MG/ML) DELIVERED BY TYVASO INHALATION DEVICE (TD-300/A)?DO
     Route: 055
     Dates: start: 20230131
  3. FUROSEMIDE [Concomitant]
     Active Substance: FUROSEMIDE
  4. METFORMIN HYDROCHLORIDE [Concomitant]
     Active Substance: METFORMIN HYDROCHLORIDE
  5. POTASSIUM CHLORIDE [Concomitant]
     Active Substance: POTASSIUM CHLORIDE
  6. PANTOPRAZOLE SODIUM [Concomitant]
     Active Substance: PANTOPRAZOLE SODIUM
     Dosage: PANTOPRAZOLE SODIUM DELAYED RELEASE [DR]
  7. ALBUTEROL SULFATE [Concomitant]
     Active Substance: ALBUTEROL SULFATE
  8. SILDENAFIL CITRATE [Concomitant]
     Active Substance: SILDENAFIL CITRATE
  9. ADVIL PM (DIPHENHYDRAMINE HYDROCHLORIDE\IBUPROFEN) [Concomitant]
     Active Substance: DIPHENHYDRAMINE HYDROCHLORIDE\IBUPROFEN
  10. ATORVASTATIN CALCIUM [Concomitant]
     Active Substance: ATORVASTATIN CALCIUM
  11. PAROXETINE HYDROCHLORIDE [Concomitant]
     Active Substance: PAROXETINE HYDROCHLORIDE\PAROXETINE HYDROCHLORIDE ANHYDROUS
  12. ASPIRIN [Concomitant]
     Active Substance: ASPIRIN
  13. OXYGEN [Concomitant]
     Active Substance: OXYGEN
  14. OFEV [Concomitant]
     Active Substance: NINTEDANIB
  15. ZINC [Concomitant]
     Active Substance: PYRITHIONE ZINC\ZINC\ZINC CHLORIDE

REACTIONS (1)
  - Product dose omission issue [Unknown]
